FAERS Safety Report 9109952 (Version 2)
Quarter: 2013Q1

REPORT INFORMATION
  Report Type: Report from Study
  Country: DE (occurrence: BE)
  Receive Date: 20130222
  Receipt Date: 20130306
  Transmission Date: 20140127
  Serious: Yes (Death, Hospitalization, Other)
  Sender: FDA-Public Use
  Company Number: DE-ACTELION-A-US2012-68566

PATIENT
  Age: 78 Year
  Sex: Male

DRUGS (3)
  1. VENTAVIS [Suspect]
     Indication: PULMONARY ARTERIAL HYPERTENSION
     Dosage: UNK, QID
     Route: 055
     Dates: start: 20120621
  2. VENTAVIS [Suspect]
     Dosage: UNK. 4 X/DAY
     Route: 055
  3. BURINEX [Concomitant]

REACTIONS (7)
  - Pulmonary hypertension [Fatal]
  - Iron deficiency [Unknown]
  - Diarrhoea [Recovered/Resolved]
  - Respiratory failure [Recovering/Resolving]
  - Generalised oedema [Recovering/Resolving]
  - Oedema [Unknown]
  - Insomnia [Unknown]
